FAERS Safety Report 5711823-0 (Version None)
Quarter: 2008Q2

REPORT INFORMATION
  Report Type: 
  Country: None (occurrence: None)
  Receive Date: 20080421
  Receipt Date: 20080417
  Transmission Date: 20081010
  Serious: Yes (Hospitalization)
  Sender: FDA-Public Use
  Company Number: FR-WYE-G01418008

PATIENT
  Sex: Male

DRUGS (2)
  1. TAZOCILLINE [Suspect]
     Indication: CULTURE URINE POSITIVE
     Dosage: UNKNOWN
     Dates: start: 20080218, end: 20080307
  2. CIPROFLOXACIN HCL [Suspect]
     Indication: CULTURE URINE POSITIVE
     Dosage: UNKNOWN
     Dates: start: 20080215, end: 20080306

REACTIONS (2)
  - DRUG RASH WITH EOSINOPHILIA AND SYSTEMIC SYMPTOMS [None]
  - THROMBOCYTOPENIA [None]
